FAERS Safety Report 17532199 (Version 2)
Quarter: 2020Q2

REPORT INFORMATION
  Report Type: Spontaneous
  Country: US (occurrence: US)
  Receive Date: 20200311
  Receipt Date: 20200424
  Transmission Date: 20200713
  Serious: Yes (Disabling, Other)
  Sender: FDA-Public Use
  Company Number: US-BRISTOL-MYERS SQUIBB COMPANY-BMS-2020-020332

PATIENT
  Age: 70 Year
  Sex: Male
  Weight: 75.28 kg

DRUGS (2)
  1. ELIQUIS [Suspect]
     Active Substance: APIXABAN
     Indication: CEREBROVASCULAR ACCIDENT PROPHYLAXIS
     Dosage: 5 MILLIGRAM, BID
     Route: 048
  2. CURCUMIN [Concomitant]
     Active Substance: CURCUMIN
     Indication: INFLAMMATION
     Dosage: UNK
     Route: 065

REACTIONS (5)
  - Throat cancer [Unknown]
  - Bedridden [Unknown]
  - Weight decreased [Unknown]
  - Hypoacusis [Unknown]
  - Immobile [Unknown]

NARRATIVE: CASE EVENT DATE: 20200306
